FAERS Safety Report 16770261 (Version 2)
Quarter: 2019Q3

REPORT INFORMATION
  Report Type: Spontaneous
  Country: ES (occurrence: ES)
  Receive Date: 20190904
  Receipt Date: 20190916
  Transmission Date: 20191005
  Serious: Yes (Hospitalization, Disabling, Other)
  Sender: FDA-Public Use
  Company Number: ES-LUPIN PHARMACEUTICALS INC.-2019-05623

PATIENT
  Age: 70 Year
  Sex: Male

DRUGS (12)
  1. TOPIRAMATE. [Interacting]
     Active Substance: TOPIRAMATE
     Dosage: 100 MILLIGRAM, QD
     Route: 065
  2. METHYLPREDNISOLONE. [Interacting]
     Active Substance: METHYLPREDNISOLONE
     Indication: PRODUCT USED FOR UNKNOWN INDICATION
     Dosage: UNK
     Route: 065
  3. OXYBUTYNIN. [Interacting]
     Active Substance: OXYBUTYNIN CHLORIDE
     Indication: PRODUCT USED FOR UNKNOWN INDICATION
     Dosage: FOR MORE THAN ONE MONTH
     Route: 065
  4. CARBIDOPA LEVODOPA [Interacting]
     Active Substance: CARBIDOPA\LEVODOPA
     Indication: PRODUCT USED FOR UNKNOWN INDICATION
     Dosage: FOR MORE THAN ONE MONTH
     Route: 065
  5. TOPIRAMATE. [Suspect]
     Active Substance: TOPIRAMATE
     Indication: AFFECTIVE DISORDER
     Dosage: 50 MILLIGRAM, QD
     Route: 065
  6. EPROSARTAN;HYDROCHLOROTHIAZIDE [Interacting]
     Active Substance: EPROSARTAN\HYDROCHLOROTHIAZIDE
     Indication: PRODUCT USED FOR UNKNOWN INDICATION
     Dosage: FOR MORE THAN ONE MONTH
     Route: 065
  7. PRIMIDONE. [Interacting]
     Active Substance: PRIMIDONE
     Indication: PRODUCT USED FOR UNKNOWN INDICATION
     Dosage: FOR MORE THAN ONE MONTH
     Route: 065
  8. FUROSEMIDE. [Interacting]
     Active Substance: FUROSEMIDE
     Indication: PRODUCT USED FOR UNKNOWN INDICATION
     Dosage: FOR MORE THAN ONE MONTH
     Route: 065
  9. DOXAZOSIN [Interacting]
     Active Substance: DOXAZOSIN MESYLATE
     Indication: PRODUCT USED FOR UNKNOWN INDICATION
     Dosage: FOR MORE THAN ONE MONTH
     Route: 065
  10. SITAGLIPTIN [Interacting]
     Active Substance: SITAGLIPTIN
     Indication: PRODUCT USED FOR UNKNOWN INDICATION
     Dosage: FOR MORE THAN ONE MONTH
     Route: 065
  11. GLIMEPIRIDE. [Interacting]
     Active Substance: GLIMEPIRIDE
     Indication: PRODUCT USED FOR UNKNOWN INDICATION
     Dosage: FOR MORE THAN ONE MONTH
     Route: 065
  12. METFORMIN [Interacting]
     Active Substance: METFORMIN HYDROCHLORIDE
     Indication: PRODUCT USED FOR UNKNOWN INDICATION
     Dosage: FOR MORE THAN ONE MONTH
     Route: 065

REACTIONS (8)
  - Cholestasis [Recovered/Resolved]
  - Weight decreased [Unknown]
  - Drug interaction [Unknown]
  - Liver injury [Recovered/Resolved]
  - Bedridden [Unknown]
  - Normochromic normocytic anaemia [Unknown]
  - Hepatotoxicity [Recovered/Resolved]
  - General physical health deterioration [Recovering/Resolving]
